FAERS Safety Report 13183980 (Version 2)
Quarter: 2017Q2

REPORT INFORMATION
  Report Type: Spontaneous
  Country: US (occurrence: US)
  Receive Date: 20170203
  Receipt Date: 20170405
  Transmission Date: 20170830
  Serious: Yes (Hospitalization, Other)
  Sender: FDA-Public Use
  Company Number: US-BAYER-2017-014799

PATIENT
  Age: 48 Year
  Sex: Male

DRUGS (2)
  1. MIRALAX [Suspect]
     Active Substance: POLYETHYLENE GLYCOL 3350
     Indication: CONSTIPATION
     Dosage: UNK
     Route: 065
  2. GLATIRAMER [Concomitant]
     Active Substance: GLATIRAMER
     Indication: MULTIPLE SCLEROSIS
     Dosage: 1 DF, QD
     Route: 042

REACTIONS (5)
  - Abdominal pain [None]
  - Gastric disorder [Not Recovered/Not Resolved]
  - Drug ineffective [None]
  - Rectal haemorrhage [Unknown]
  - Faecaloma [None]
